FAERS Safety Report 10136629 (Version 1)
Quarter: 2014Q2

REPORT INFORMATION
  Report Type: Spontaneous
  Country: US (occurrence: None)
  Receive Date: 20140428
  Receipt Date: 20140428
  Transmission Date: 20141212
  Serious: Yes (Hospitalization)
  Sender: FDA-Public Use
  Company Number: None

PATIENT
  Age: 69 Year
  Sex: Male
  Weight: 100 kg

DRUGS (6)
  1. KCENTRA [Suspect]
     Indication: HAEMORRHAGE
     Route: 042
     Dates: start: 20140417
  2. KCENTRA [Suspect]
     Indication: INTERNATIONAL NORMALISED RATIO INCREASED
     Route: 042
     Dates: start: 20140417
  3. FOSPHENYTOIN [Concomitant]
  4. PROPOFOL [Concomitant]
  5. POTASSIUM CHLORIDE [Concomitant]
  6. CEFAZOLIN [Concomitant]

REACTIONS (1)
  - Deep vein thrombosis [None]
